FAERS Safety Report 8840631 (Version 1)
Quarter: 2012Q4

REPORT INFORMATION
  Report Type: 
  Country: CA (occurrence: CA)
  Receive Date: 20121015
  Receipt Date: 20121015
  Transmission Date: 20130627
  Serious: Yes (Hospitalization)
  Sender: FDA-Public Use
  Company Number: CA-ELI_LILLY_AND_COMPANY-CA201210003008

PATIENT
  Age: 74 Year
  Sex: Female

DRUGS (4)
  1. FORTEO [Suspect]
     Indication: OSTEOPOROSIS
     Dosage: 20 ug, qd
     Route: 058
     Dates: start: 20120511, end: 20120926
  2. SYNTHROID [Concomitant]
     Dosage: 0.15 mg, UNK
  3. CALCIUM [Concomitant]
     Dosage: UNK
  4. VITAMIN D [Concomitant]
     Dosage: UNK

REACTIONS (5)
  - Pyrexia [Recovering/Resolving]
  - Chest pain [Recovering/Resolving]
  - Blood iron decreased [Recovering/Resolving]
  - Cyst [Unknown]
  - Fatigue [Recovering/Resolving]
